FAERS Safety Report 16939202 (Version 1)
Quarter: 2019Q4

REPORT INFORMATION
  Report Type: Spontaneous
  Country: CA (occurrence: CA)
  Receive Date: 20191021
  Receipt Date: 20191021
  Transmission Date: 20200122
  Serious: Yes (Other)
  Sender: FDA-Public Use
  Company Number: CA-ACCORD-158144

PATIENT
  Age: 21 Year
  Sex: Male

DRUGS (5)
  1. METFORMIN [Concomitant]
     Active Substance: METFORMIN HYDROCHLORIDE
  2. TEGRETOL XR [Concomitant]
     Active Substance: CARBAMAZEPINE
  3. TOPIRAMATE. [Suspect]
     Active Substance: TOPIRAMATE
     Indication: EPILEPSY
  4. RIVOTRIL [Concomitant]
     Active Substance: CLONAZEPAM
  5. LANTUS [Concomitant]
     Active Substance: INSULIN GLARGINE
     Dosage: SOLUTION SUBCUTANEOUS

REACTIONS (3)
  - Epilepsy [Unknown]
  - Seizure [Unknown]
  - Condition aggravated [Unknown]
